FAERS Safety Report 5879411-3 (Version None)
Quarter: 2008Q3

REPORT INFORMATION
  Report Type: 
  Country: None (occurrence: None)
  Receive Date: 20080912
  Receipt Date: 20080903
  Transmission Date: 20090109
  Serious: Yes (Other)
  Sender: FDA-Public Use
  Company Number: B0535470A

PATIENT
  Age: 61 Year
  Sex: Male

DRUGS (5)
  1. REQUIP [Suspect]
     Indication: PARKINSON'S DISEASE
     Dosage: 24MG PER DAY
     Route: 048
     Dates: start: 20040413
  2. STALEVO 100 [Concomitant]
     Indication: PARKINSON'S DISEASE
     Dosage: 500MG PER DAY
     Route: 048
     Dates: start: 20050101
  3. FLUOXETINE [Concomitant]
     Indication: DEPRESSION
     Dosage: 20MG PER DAY
     Route: 048
  4. ATENOLOL [Concomitant]
     Dosage: 50MG PER DAY
     Route: 048
  5. SIMVASTATIN [Concomitant]
     Dosage: 40MG PER DAY
     Route: 048

REACTIONS (3)
  - GAMBLING [None]
  - INCREASED APPETITE [None]
  - INSOMNIA [None]
